FAERS Safety Report 22033497 (Version 1)
Quarter: 2023Q1

REPORT INFORMATION
  Report Type: Other
  Country: CN (occurrence: None)
  Receive Date: 20230224
  Receipt Date: 20230224
  Transmission Date: 20230417
  Serious: Yes (Other)
  Sender: FDA-Public Use
  Company Number: CN-ROCHE-3291986

PATIENT

DRUGS (4)
  1. TRASTUZUMAB [Suspect]
     Active Substance: TRASTUZUMAB
     Indication: HER2 positive breast cancer
     Route: 041
  2. TRASTUZUMAB [Suspect]
     Active Substance: TRASTUZUMAB
     Route: 041
  3. PERTUZUMAB [Suspect]
     Active Substance: PERTUZUMAB
     Indication: HER2 positive breast cancer
     Route: 042
  4. PERTUZUMAB [Suspect]
     Active Substance: PERTUZUMAB
     Route: 042

REACTIONS (1)
  - Cardiotoxicity [Unknown]
